FAERS Safety Report 9952749 (Version 1)
Quarter: 2014Q1

REPORT INFORMATION
  Report Type: Spontaneous
  Country: US (occurrence: US)
  Receive Date: 20140304
  Receipt Date: 20140304
  Transmission Date: 20141002
  Serious: No
  Sender: FDA-Public Use
  Company Number: US-AMGEN-USASP2013090613

PATIENT
  Age: 53 Year
  Sex: Female
  Weight: 64.4 kg

DRUGS (19)
  1. ENBREL [Suspect]
     Indication: PRODUCT USED FOR UNKNOWN INDICATION
     Dosage: 50 MG, QWK
     Route: 058
  2. DICLOFENAC [Concomitant]
     Dosage: 100 MG ER, UNK
     Route: 048
  3. FOLIC ACID [Concomitant]
     Dosage: UNK
     Route: 048
  4. METHOTREXATE [Concomitant]
     Dosage: 2.5 MG, UNK
     Route: 048
  5. LANTUS [Concomitant]
     Dosage: UNK
     Route: 058
  6. NOVOLOG [Concomitant]
     Dosage: UNK
     Route: 058
  7. ZONISAMIDE [Concomitant]
     Dosage: 100 MG, UNK
     Route: 048
  8. NASONEX [Concomitant]
     Dosage: 50 MU/AC IN, UNK
  9. ASTEPRO [Concomitant]
     Dosage: 0.15% IN, UNK
  10. CYCLOBENZAPRINE [Concomitant]
     Dosage: 10 MG, UNK
     Route: 048
  11. AMITRIPTYLIN [Concomitant]
     Dosage: 150 MG, UNK
     Route: 048
  12. LISINOPRIL [Concomitant]
     Dosage: 10 MG, UNK
     Route: 048
  13. SUMATRIPTAN [Concomitant]
     Dosage: 100 MG, UNK
     Route: 048
  14. PROMETHAZINE [Concomitant]
     Dosage: 25 MG, UNK
     Route: 048
  15. MULTIVITAMIN                       /00097801/ [Concomitant]
     Dosage: UNK
     Route: 048
  16. CALCIUM D                          /01483701/ [Concomitant]
     Dosage: UNK
     Route: 048
  17. POTASSIUM [Concomitant]
     Dosage: 95 MG, UNK
     Route: 048
  18. VITAMIN D                          /00107901/ [Concomitant]
     Dosage: 1000 UNIT, UNK
     Route: 048
  19. MELATONIN [Concomitant]
     Dosage: 300 MU, UNK
     Route: 048

REACTIONS (2)
  - Drug ineffective [Unknown]
  - Alopecia [Unknown]
